FAERS Safety Report 7149238-3 (Version None)
Quarter: 2010Q4

REPORT INFORMATION
  Report Type: 
  Country: None (occurrence: None)
  Receive Date: 20101122
  Receipt Date: 20101112
  Transmission Date: 20110411
  Serious: Yes (Hospitalization, Disabling, Other)
  Sender: FDA-Public Use
  Company Number: 2010SP028233

PATIENT
  Sex: Female
  Weight: 57.6068 kg

DRUGS (4)
  1. NUVARING [Suspect]
     Indication: CONTRACEPTION
     Dosage: VAG
     Route: 067
     Dates: start: 20071213, end: 20080503
  2. RHINOCORT [Concomitant]
  3. ALLEGRA [Concomitant]
  4. PRENATAL VITAMINS [Concomitant]

REACTIONS (8)
  - ANEURYSM [None]
  - ANXIETY [None]
  - CEREBRAL HAEMORRHAGE [None]
  - CEREBROVASCULAR ACCIDENT [None]
  - CONVULSION [None]
  - HERNIA REPAIR [None]
  - LOSS OF EMPLOYMENT [None]
  - MEMORY IMPAIRMENT [None]
